FAERS Safety Report 6534032-4 (Version None)
Quarter: 2010Q1

REPORT INFORMATION
  Report Type: 
  Country: None (occurrence: None)
  Receive Date: 20100112
  Receipt Date: 20100106
  Transmission Date: 20100710
  Serious: Yes (Hospitalization)
  Sender: FDA-Public Use
  Company Number: ZA-JNJFOC-20091005995

PATIENT
  Sex: Female
  Weight: 108 kg

DRUGS (1)
  1. REVELLEX [Suspect]
     Indication: RHEUMATOID ARTHRITIS
     Route: 042
     Dates: start: 20061219, end: 20090820

REACTIONS (2)
  - RHEUMATOID ARTHRITIS [None]
  - SPINAL CORD COMPRESSION [None]
